FAERS Safety Report 21562941 (Version 1)
Quarter: 2022Q4

REPORT INFORMATION
  Report Type: Spontaneous
  Country: US (occurrence: None)
  Receive Date: 20221107
  Receipt Date: 20221107
  Transmission Date: 20230113
  Serious: No
  Sender: FDA-Public Use
  Company Number: None

PATIENT
  Age: 46 Year
  Sex: Female
  Weight: 102.69 kg

DRUGS (17)
  1. PROMACTA [Suspect]
     Active Substance: ELTROMBOPAG OLAMINE
     Indication: Thrombocytopenia
     Dosage: FREQUENCY : DAILY;?
     Route: 048
  2. ATORVASTATIN [Concomitant]
  3. ATROPINE [Concomitant]
  4. AURYXIA [Concomitant]
  5. BRIMONDIDINE TARTRATE-TIMOLOL [Concomitant]
  6. CLEARLAX [Concomitant]
  7. CLOTIMAZOLE [Concomitant]
  8. DIALYVITE [Concomitant]
  9. DORZOLAMIDE [Concomitant]
  10. GABAPENTIN [Concomitant]
  11. HUMALOG [Concomitant]
  12. LANTUS [Concomitant]
  13. LEVOTHYROXINE [Concomitant]
  14. METOPROLOL [Concomitant]
     Active Substance: METOPROLOL
  15. NIFEDIPINE [Concomitant]
     Active Substance: NIFEDIPINE
  16. PREDNISOLONE [Concomitant]
  17. VITAMIN D3 [Concomitant]

REACTIONS (1)
  - Cardiac disorder [None]
